FAERS Safety Report 21658238 (Version 1)
Quarter: 2022Q4

REPORT INFORMATION
  Report Type: Spontaneous
  Country: US (occurrence: US)
  Receive Date: 20221129
  Receipt Date: 20221129
  Transmission Date: 20230112
  Serious: Yes (Other)
  Sender: FDA-Public Use
  Company Number: US-PFIZER INC-202201332700

PATIENT
  Sex: Male

DRUGS (1)
  1. PAXLOVID [Suspect]
     Active Substance: NIRMATRELVIR\RITONAVIR
     Indication: COVID-19 treatment
     Dosage: UNK
     Dates: start: 202211, end: 20221125

REACTIONS (7)
  - Haematochezia [Unknown]
  - Diarrhoea [Unknown]
  - Polyp [Unknown]
  - Fatigue [Not Recovered/Not Resolved]
  - Nasal congestion [Not Recovered/Not Resolved]
  - Dizziness [Not Recovered/Not Resolved]
  - Oral herpes [Unknown]

NARRATIVE: CASE EVENT DATE: 20221101
